FAERS Safety Report 5794512-6 (Version None)
Quarter: 2008Q2

REPORT INFORMATION
  Report Type: 
  Country: None (occurrence: None)
  Receive Date: 20080626
  Receipt Date: 20080617
  Transmission Date: 20081010
  Serious: Yes (Hospitalization)
  Sender: FDA-Public Use
  Company Number: 100#03#2008-03199

PATIENT
  Age: 43 Year
  Sex: Female

DRUGS (5)
  1. CARBOPLATIN [Suspect]
     Indication: DRUG USE FOR UNKNOWN INDICATION
     Dates: start: 20071211, end: 20071211
  2. PACLITAXEL [Suspect]
     Indication: DRUG USE FOR UNKNOWN INDICATION
     Dosage: 228 MG INTRAVENOUS
     Route: 042
     Dates: start: 20071211, end: 20071211
  3. CETIRIZINE HCL [Concomitant]
  4. DOMPERIDONE (DOMPERIDONE) [Concomitant]
  5. PALONOSETRON (PALONOSETRON) [Concomitant]

REACTIONS (9)
  - CHILLS [None]
  - COUGH [None]
  - FEELING HOT [None]
  - HEADACHE [None]
  - INFUSION RELATED REACTION [None]
  - NAUSEA [None]
  - PRURITUS [None]
  - TACHYCARDIA [None]
  - URTICARIA [None]
